FAERS Safety Report 9140681 (Version 1)
Quarter: 2013Q1

REPORT INFORMATION
  Report Type: Spontaneous
  Country: US (occurrence: US)
  Receive Date: 20130305
  Receipt Date: 20130305
  Transmission Date: 20140127
  Serious: No
  Sender: FDA-Public Use
  Company Number: US-009507513-1302USA012937

PATIENT
  Sex: 0

DRUGS (2)
  1. AZASITE [Suspect]
     Dosage: 1 DROP IN EACH EYE TWICE A DAY FOR TWO DAYS
     Route: 047
     Dates: start: 20130219, end: 20130221
  2. AZASITE [Suspect]
     Dosage: 1 DROP IN EACH EYE DAILY FOR FIVE DAYS
     Route: 047
     Dates: start: 20130222

REACTIONS (3)
  - Drug dose omission [Unknown]
  - Product quality issue [Unknown]
  - No adverse event [Unknown]
